FAERS Safety Report 10222411 (Version 2)
Quarter: 2014Q2

REPORT INFORMATION
  Report Type: Report from Study
  Country: NL (occurrence: NL)
  Receive Date: 20140606
  Receipt Date: 20140606
  Transmission Date: 20141212
  Serious: Yes (Death, Life-Threatening)
  Sender: FDA-Public Use
  Company Number: NL-CELGENEUS-114-21880-14052286

PATIENT
  Age: 54 Year
  Sex: Female
  Weight: 51 kg

DRUGS (8)
  1. REVLIMID [Suspect]
     Indication: ACUTE MYELOID LEUKAEMIA
     Route: 048
     Dates: start: 20140430, end: 20140514
  2. IDARUBICIN [Suspect]
     Indication: ACUTE MYELOID LEUKAEMIA
     Route: 041
     Dates: start: 20140430, end: 20140504
  3. CYTARABIN [Suspect]
     Indication: ACUTE MYELOID LEUKAEMIA
     Route: 041
     Dates: start: 20140430, end: 20140506
  4. CIPROFLOXACIN [Concomitant]
     Indication: INFECTION PROPHYLAXIS
     Route: 048
     Dates: start: 20140429, end: 20140514
  5. FLUCONAZOL [Concomitant]
     Indication: INFECTION PROPHYLAXIS
     Route: 048
     Dates: start: 20140429, end: 20140513
  6. COLISTINE [Concomitant]
     Indication: INFECTION PROPHYLAXIS
     Route: 048
     Dates: start: 20140429, end: 20140503
  7. AMFOTERICINE B [Concomitant]
     Indication: PROPHYLAXIS
     Dosage: 4X
     Route: 048
     Dates: start: 20140513, end: 20140514
  8. BENZYLPENICIL [Concomitant]
     Indication: PROPHYLAXIS
     Route: 041
     Dates: start: 20140508, end: 20140514

REACTIONS (6)
  - Sepsis [Fatal]
  - Febrile neutropenia [Recovered/Resolved]
  - White blood cell count decreased [None]
  - Frequent bowel movements [None]
  - Candida test positive [None]
  - Multi-organ failure [None]
